FAERS Safety Report 17152974 (Version 1)
Quarter: 2019Q4

REPORT INFORMATION
  Report Type: Spontaneous
  Country: DE (occurrence: DE)
  Receive Date: 20191213
  Receipt Date: 20191213
  Transmission Date: 20200122
  Serious: Yes (Hospitalization)
  Sender: FDA-Public Use
  Company Number: DE-ELI_LILLY_AND_COMPANY-DE201912001179

PATIENT
  Age: 69 Year
  Sex: Male
  Weight: 68 kg

DRUGS (12)
  1. CYANOCOBALAMIN. [Concomitant]
     Active Substance: CYANOCOBALAMIN
     Indication: PRODUCT USED FOR UNKNOWN INDICATION
     Dosage: 1 MG/ML, OTHER (EVERY 6 OR 9 WEEKS)
     Route: 042
     Dates: end: 20180406
  2. MORPHIN [MORPHINE HYDROCHLORIDE] [Concomitant]
     Active Substance: MORPHINE HYDROCHLORIDE
     Indication: PRODUCT USED FOR UNKNOWN INDICATION
     Dosage: 02 DOSAGE FORM, BID (MIDDAY; BEDTIME)
     Route: 048
  3. MOVICOL [MACROGOL 3350;POTASSIUM CHLORIDE;SOD [Concomitant]
     Indication: PRODUCT USED FOR UNKNOWN INDICATION
     Dosage: 01 DOSAGE FORM, DAILY (MIDDAY)
     Route: 048
  4. ONDANSETRON [Concomitant]
     Active Substance: ONDANSETRON
     Indication: PRODUCT USED FOR UNKNOWN INDICATION
     Dosage: 8 MG, BID (MORNING; EVENING)
     Route: 048
  5. PANTOPRAZOL [PANTOPRAZOLE] [Concomitant]
     Active Substance: PANTOPRAZOLE
     Indication: PRODUCT USED FOR UNKNOWN INDICATION
     Dosage: 40 MG, EACH MORNING
     Route: 048
  6. BEVACIZUMAB. [Suspect]
     Active Substance: BEVACIZUMAB
     Indication: PRODUCT USED FOR UNKNOWN INDICATION
     Dosage: 7.5 MG/KG/KG, UNKNOWN
     Route: 042
  7. DEXAMETHASONE. [Concomitant]
     Active Substance: DEXAMETHASONE
     Indication: PRODUCT USED FOR UNKNOWN INDICATION
     Dosage: 4 MG, BID (MORNING; EVENING)
     Route: 048
  8. METOCLOPRAMIDE. [Concomitant]
     Active Substance: METOCLOPRAMIDE
     Indication: PRODUCT USED FOR UNKNOWN INDICATION
     Dosage: 10 MG, TID (MORNING; MIDDAY; EVENING)
     Route: 048
  9. XARELTO [Concomitant]
     Active Substance: RIVAROXABAN
     Indication: PRODUCT USED FOR UNKNOWN INDICATION
     Dosage: 10 MG, EACH MORNING
     Route: 048
  10. PEMETREXED. [Suspect]
     Active Substance: PEMETREXED
     Indication: PRODUCT USED FOR UNKNOWN INDICATION
     Dosage: UNK UNK, UNKNOWN
     Route: 042
  11. MORPHIN [MORPHINE HYDROCHLORIDE] [Concomitant]
     Active Substance: MORPHINE HYDROCHLORIDE
     Indication: PRODUCT USED FOR UNKNOWN INDICATION
     Dosage: 8-12 DROPS, PRN
     Route: 048
  12. FOLSAN [Concomitant]
     Active Substance: FOLIC ACID
     Indication: PRODUCT USED FOR UNKNOWN INDICATION
     Dosage: 0.4 MG, EACH MORNING
     Route: 048

REACTIONS (7)
  - Bradyphrenia [Unknown]
  - Apathy [Unknown]
  - Confusional state [Unknown]
  - Epistaxis [Unknown]
  - Pyrexia [Unknown]
  - Off label use [Unknown]
  - General physical health deterioration [Unknown]
